FAERS Safety Report 17263154 (Version 1)
Quarter: 2020Q1

REPORT INFORMATION
  Report Type: Spontaneous
  Country: US (occurrence: US)
  Receive Date: 20200111
  Receipt Date: 20200111
  Transmission Date: 20200409
  Serious: Yes (Other)
  Sender: FDA-Public Use
  Company Number: None

PATIENT
  Age: 65 Year
  Sex: Female
  Weight: 90 kg

DRUGS (4)
  1. VENTOLIN [Concomitant]
     Active Substance: ALBUTEROL SULFATE
  2. BENZONATATE 100 MG CAPSULE [Suspect]
     Active Substance: BENZONATATE
     Indication: COUGH
     Dosage: ?          QUANTITY:45 CAPSULE(S);?
     Route: 048
     Dates: start: 20200110, end: 20200111
  3. PREDNISONE 20MG [Concomitant]
     Active Substance: PREDNISONE
  4. ENSURE DRINK [Concomitant]

REACTIONS (13)
  - Insomnia [None]
  - Headache [None]
  - Arthralgia [None]
  - Back pain [None]
  - Pain in extremity [None]
  - Toothache [None]
  - Chest pain [None]
  - Hallucination [None]
  - Sweating fever [None]
  - Bronchitis [None]
  - Cough [None]
  - Pulmonary congestion [None]
  - Chills [None]

NARRATIVE: CASE EVENT DATE: 20200110
